FAERS Safety Report 7551971-6 (Version None)
Quarter: 2011Q2

REPORT INFORMATION
  Report Type: 
  Country: None (occurrence: None)
  Receive Date: 20110616
  Receipt Date: 20110608
  Transmission Date: 20111010
  Serious: No
  Sender: FDA-Public Use
  Company Number: JP-NOVOPROD-328122

PATIENT
  Age: 73 Year
  Sex: Female
  Weight: 61 kg

DRUGS (9)
  1. CRESTOR [Concomitant]
     Dosage: UNK
     Route: 048
     Dates: start: 20100224
  2. ALLEGRA [Suspect]
     Dosage: UNK
     Route: 048
     Dates: start: 20110308, end: 20110407
  3. HUSTAGIN                           /01028601/ [Suspect]
     Route: 048
  4. VICTOZA [Suspect]
     Indication: TYPE 2 DIABETES MELLITUS
     Dosage: 0.3 MG, QD
     Route: 058
     Dates: start: 20110329, end: 20110411
  5. TAMIFLU [Suspect]
     Dosage: UNK
     Route: 048
     Dates: start: 20110402, end: 20110407
  6. VICTOZA [Suspect]
     Dosage: UNK
     Route: 058
  7. TIPEPIDINE HIBENZATE [Suspect]
     Route: 048
  8. DIHYDROCODEINE PHOSPHATE [Suspect]
     Route: 048
  9. BOUFUUTSUUSHOUSAN [Concomitant]
     Dosage: UNK
     Route: 048
     Dates: start: 20100508

REACTIONS (1)
  - PANCREATITIS ACUTE [None]
